FAERS Safety Report 14172531 (Version 2)
Quarter: 2018Q1

REPORT INFORMATION
  Report Type: Spontaneous
  Country: US (occurrence: US)
  Receive Date: 20171109
  Receipt Date: 20180118
  Transmission Date: 20180508
  Serious: No
  Sender: FDA-Public Use
  Company Number: US-009507513-1711USA003548

PATIENT
  Sex: Female
  Weight: 102.4 kg

DRUGS (1)
  1. NEXPLANON [Suspect]
     Active Substance: ETONOGESTREL
     Indication: CONTRACEPTION
     Dosage: 1 DF, TO BE INSERTED ONE TIME BY PRESCRIBER
     Route: 059
     Dates: start: 20161212

REACTIONS (1)
  - Device breakage [Not Recovered/Not Resolved]
